FAERS Safety Report 23677032 (Version 1)
Quarter: 2024Q1

REPORT INFORMATION
  Report Type: Spontaneous
  Country: US (occurrence: US)
  Receive Date: 20240327
  Receipt Date: 20240327
  Transmission Date: 20240409
  Serious: No
  Sender: FDA-Public Use
  Company Number: US-TEVA-VS-3147714

PATIENT
  Age: 67 Year
  Sex: Female

DRUGS (3)
  1. CLONAZEPAM [Suspect]
     Active Substance: CLONAZEPAM
     Indication: Anxiety
     Route: 065
  2. CLONAZEPAM [Suspect]
     Active Substance: CLONAZEPAM
     Indication: Anxiety
     Route: 065
  3. QUETIAPINE [Concomitant]
     Active Substance: QUETIAPINE

REACTIONS (15)
  - Drug ineffective [Unknown]
  - Adverse event [Unknown]
  - Quality of life decreased [Unknown]
  - Therapy change [Unknown]
  - Adverse event [Unknown]
  - White blood cell count decreased [Unknown]
  - Malaise [Unknown]
  - Therapy change [Unknown]
  - Anxiety [Unknown]
  - Wrong technique in product usage process [Unknown]
  - Adverse event [Unknown]
  - Adverse event [Unknown]
  - Malaise [Unknown]
  - Sleep disorder [Unknown]
  - Adverse event [Unknown]
